FAERS Safety Report 10205881 (Version 1)
Quarter: 2014Q2

REPORT INFORMATION
  Report Type: Report from Study
  Country: US (occurrence: US)
  Receive Date: 20140530
  Receipt Date: 20140530
  Transmission Date: 20141212
  Serious: Yes (Hospitalization)
  Sender: FDA-Public Use
  Company Number: US-BIOGENIDEC-2014BI049095

PATIENT
  Age: 50 Year
  Sex: Female
  Weight: 79 kg

DRUGS (1)
  1. TECFIDERA [Suspect]
     Indication: SECONDARY PROGRESSIVE MULTIPLE SCLEROSIS
     Route: 048
     Dates: start: 201311, end: 20140501

REACTIONS (5)
  - Heart rate irregular [Unknown]
  - Dizziness [Unknown]
  - Fatigue [Unknown]
  - Balance disorder [Unknown]
  - Off label use [Unknown]
